FAERS Safety Report 20880288 (Version 1)
Quarter: 2022Q2

REPORT INFORMATION
  Report Type: Report from Study
  Country: US (occurrence: US)
  Receive Date: 20220526
  Receipt Date: 20220526
  Transmission Date: 20220720
  Serious: Yes (Other)
  Sender: FDA-Public Use
  Company Number: US-TAKEDA-2022TUS035104

PATIENT
  Age: 41 Year
  Sex: Female

DRUGS (4)
  1. TEDUGLUTIDE [Suspect]
     Active Substance: TEDUGLUTIDE
     Indication: Short-bowel syndrome
     Dosage: 0.57 MILLILITER, QD
     Route: 050
     Dates: start: 20220516
  2. TEDUGLUTIDE [Suspect]
     Active Substance: TEDUGLUTIDE
     Indication: Short-bowel syndrome
     Dosage: 0.57 MILLILITER, QD
     Route: 050
     Dates: start: 20220516
  3. TEDUGLUTIDE [Suspect]
     Active Substance: TEDUGLUTIDE
     Indication: Short-bowel syndrome
     Dosage: 0.57 MILLILITER, QD
     Route: 050
     Dates: start: 20220516
  4. TEDUGLUTIDE [Suspect]
     Active Substance: TEDUGLUTIDE
     Indication: Short-bowel syndrome
     Dosage: 0.57 MILLILITER, QD
     Route: 050
     Dates: start: 20220516

REACTIONS (1)
  - Stoma site haemorrhage [Not Recovered/Not Resolved]

NARRATIVE: CASE EVENT DATE: 20220518
